FAERS Safety Report 16309212 (Version 1)
Quarter: 2019Q2

REPORT INFORMATION
  Report Type: Spontaneous
  Country: US (occurrence: US)
  Receive Date: 20190514
  Receipt Date: 20190514
  Transmission Date: 20190711
  Serious: Yes (Congenital Anomaly, Other)
  Sender: FDA-Public Use
  Company Number: US-TEVA-2019-US-1048766

PATIENT
  Sex: Female
  Weight: 18.6 kg

DRUGS (4)
  1. ACETAMINOPHEN ELIXIR [Concomitant]
     Indication: PYREXIA
     Dosage: FORM STRENGTH: 160 MG/5 ML ORAL ELIXIR TAKEN 8 ML (256 MG TOTAL) BY MOUTH EVERY 4 HOURS AS NEEDED
     Route: 048
  2. PEDIATRIC MULTIPLE VIT-C-FA [Concomitant]
     Route: 048
  3. FOLIC ACID. [Suspect]
     Active Substance: FOLIC ACID
     Dosage: 1 MILLIGRAM DAILY;
     Route: 048
  4. ACETAMINOPHEN ELIXIR [Concomitant]
     Indication: PAIN

REACTIONS (1)
  - Thalassaemia alpha [Unknown]
